FAERS Safety Report 7460629-3 (Version None)
Quarter: 2011Q2

REPORT INFORMATION
  Report Type: 
  Country: None (occurrence: None)
  Receive Date: 20110505
  Receipt Date: 20110427
  Transmission Date: 20111010
  Serious: Yes (Other)
  Sender: FDA-Public Use
  Company Number: US-JNJFOC-20110502006

PATIENT
  Sex: Female

DRUGS (9)
  1. SYNTHROID [Concomitant]
  2. TRAMADOL [Suspect]
     Indication: PAIN
     Dosage: 3 TABLETS A DAY
     Route: 048
  3. OTHER THERAPEUTIC AGENT [Concomitant]
     Indication: POLYURIA
     Route: 065
  4. VALIUM [Concomitant]
     Indication: SLEEP DISORDER
  5. ACETAMINOPHEN [Suspect]
     Indication: PAIN
  6. LISINOPRIL [Concomitant]
  7. TOPROL-XL [Concomitant]
  8. EVISTA [Concomitant]
  9. ACETAMINOPHEN [Suspect]

REACTIONS (2)
  - CONFUSIONAL STATE [None]
  - AMNESIA [None]
